FAERS Safety Report 4514062-4 (Version None)
Quarter: 2004Q4

REPORT INFORMATION
  Report Type: 
  Country: None (occurrence: None)
  Receive Date: 20041130
  Receipt Date: 20041118
  Transmission Date: 20050328
  Serious: Yes (Hospitalization)
  Sender: FDA-Public Use
  Company Number: JP-GLAXOSMITHKLINE-B0357481A

PATIENT
  Age: 50 Year
  Sex: Male

DRUGS (1)
  1. ZOVIRAX [Suspect]
     Indication: HERPES ZOSTER
     Dosage: 4000MG PER DAY
     Route: 048

REACTIONS (3)
  - DELIRIUM [None]
  - OVERDOSE [None]
  - RESTLESSNESS [None]
